FAERS Safety Report 8221296-4 (Version None)
Quarter: 2012Q1

REPORT INFORMATION
  Report Type: 
  Country: None (occurrence: None)
  Receive Date: 20120320
  Receipt Date: 20120314
  Transmission Date: 20120608
  Serious: Yes (Other)
  Sender: FDA-Public Use
  Company Number: AU-PFIZER INC-2011016848

PATIENT
  Weight: 2.26 kg

DRUGS (6)
  1. PRISTIQ [Suspect]
     Indication: ANXIETY
  2. DILAUDID [Concomitant]
     Indication: PAIN
     Dosage: 2 MG, AS NEEDED
     Route: 064
     Dates: start: 20100601
  3. PRISTIQ [Suspect]
     Indication: DEPRESSION
     Dosage: 50 MG, 1X/DAY
     Route: 064
     Dates: start: 20110112
  4. HYDROMORPHONE HCL [Concomitant]
     Indication: PAIN
     Dosage: 8 MG, 1X/DAY
     Route: 064
     Dates: start: 20100701
  5. ENDEP [Concomitant]
     Dosage: 25 MG, AT NIGHT
     Route: 064
     Dates: start: 20080701, end: 20110101
  6. MAXOLON [Concomitant]
     Indication: VOMITING
     Dosage: 10 MG, AS NEEDED
     Route: 064
     Dates: start: 20110201

REACTIONS (3)
  - HYPOGLYCAEMIA [None]
  - PREMATURE BABY [None]
  - MATERNAL EXPOSURE TIMING UNSPECIFIED [None]
